FAERS Safety Report 7459518-X (Version None)
Quarter: 2011Q2

REPORT INFORMATION
  Report Type: 
  Country: None (occurrence: None)
  Receive Date: 20110426
  Receipt Date: 20110412
  Transmission Date: 20111010
  Serious: Yes (Hospitalization, Other)
  Sender: FDA-Public Use
  Company Number: 030674

PATIENT
  Age: 50 Year
  Sex: Female

DRUGS (4)
  1. CIMZIA [Suspect]
     Indication: RHEUMATOID ARTHRITIS
     Dosage: (SINGLE DOSE SUBCUTANEOUS)
     Route: 058
     Dates: start: 20110318, end: 20110101
  2. RIFAMPIN AND ISONIAZID [Concomitant]
  3. METOJECT /00113801/ [Concomitant]
  4. PREDNISONE [Concomitant]

REACTIONS (1)
  - TOXIC SKIN ERUPTION [None]
